FAERS Safety Report 4395585-8 (Version None)
Quarter: 2004Q3

REPORT INFORMATION
  Report Type: 
  Country: None (occurrence: None)
  Receive Date: 20040708
  Receipt Date: 20040624
  Transmission Date: 20050211
  Serious: Yes (Hospitalization)
  Sender: FDA-Public Use
  Company Number: 2004UW13475

PATIENT
  Age: 72 Year
  Sex: Male

DRUGS (16)
  1. METOPROLOL SUCCINATE [Suspect]
     Indication: CARDIAC FAILURE CHRONIC
     Dosage: 12.5 MG QD PO
     Route: 048
     Dates: start: 20040503
  2. ENOXIMONE [Suspect]
     Indication: CARDIAC FAILURE CHRONIC
     Dosage: 50 MG TID PO
     Route: 048
     Dates: start: 20040422
  3. ENOXIMONE [Suspect]
     Indication: CARDIAC FAILURE CHRONIC
     Dosage: 25 MG TID PO
     Route: 048
     Dates: start: 20040408, end: 20040421
  4. AMIODARONE HCL [Concomitant]
  5. DIGOXIN [Concomitant]
  6. ASPIRIN [Concomitant]
  7. ISOSORBIDE MONONITRATE [Concomitant]
  8. ATORVASTATIN CALCIUM [Concomitant]
  9. TAMSULOSIN HCL [Concomitant]
  10. HYDROCORTISONE [Concomitant]
  11. ESOMEPRAZOLE [Concomitant]
  12. COUMADIN [Concomitant]
  13. IRON SULFATETHIAMIN COMPOUND TAB [Concomitant]
  14. HYDRALAZINE [Concomitant]
  15. FUROSEMIDE [Concomitant]
  16. POTASSIUM CHLORIDE [Concomitant]

REACTIONS (3)
  - COMA [None]
  - SYNCOPE [None]
  - VENTRICULAR FIBRILLATION [None]
